FAERS Safety Report 10924122 (Version 1)
Quarter: 2015Q1

REPORT INFORMATION
  Report Type: Spontaneous
  Country: GB (occurrence: GB)
  Receive Date: 20150318
  Receipt Date: 20150318
  Transmission Date: 20150721
  Serious: Yes (Other)
  Sender: FDA-Public Use
  Company Number: GB-AUROBINDO-AUR-APL-2015-02156

PATIENT
  Age: 17 Year
  Sex: Male

DRUGS (1)
  1. FLUOXETINE [Suspect]
     Active Substance: FLUOXETINE\FLUOXETINE HYDROCHLORIDE
     Indication: PRODUCT USED FOR UNKNOWN INDICATION
     Dosage: UNK, 10-20MG
     Route: 065

REACTIONS (6)
  - Disturbance in attention [Unknown]
  - Apathy [Unknown]
  - Drug abuse [Unknown]
  - Social avoidant behaviour [Unknown]
  - Substance use [Unknown]
  - Alcohol use [Unknown]
